FAERS Safety Report 12815827 (Version 2)
Quarter: 2017Q4

REPORT INFORMATION
  Report Type: Report from Study
  Country: US (occurrence: US)
  Receive Date: 20161006
  Receipt Date: 20171004
  Transmission Date: 20180320
  Serious: No
  Sender: FDA-Public Use
  Company Number: US-AMGEN-USASL2016056480

PATIENT
  Age: 60 Year
  Sex: Female

DRUGS (1)
  1. PROLIA [Suspect]
     Active Substance: DENOSUMAB
     Indication: OSTEOPOROSIS
     Dosage: 60 MG, Q6MO
     Route: 065
     Dates: start: 201506

REACTIONS (11)
  - Nervousness [Unknown]
  - Rotator cuff syndrome [Unknown]
  - Onychoclasis [Recovered/Resolved]
  - Impaired healing [Not Recovered/Not Resolved]
  - Fatigue [Unknown]
  - Joint stiffness [Unknown]
  - Dry skin [Not Recovered/Not Resolved]
  - Stoma site irritation [Not Recovered/Not Resolved]
  - Arthritis [Unknown]
  - Arthralgia [Unknown]
  - Skin discolouration [Not Recovered/Not Resolved]

NARRATIVE: CASE EVENT DATE: 2016
